FAERS Safety Report 8977424 (Version 2)
Quarter: 2013Q1

REPORT INFORMATION
  Report Type: Spontaneous
  Country: DE (occurrence: DE)
  Receive Date: 20121220
  Receipt Date: 20130311
  Transmission Date: 20140127
  Serious: Yes (Hospitalization)
  Sender: FDA-Public Use
  Company Number: DE-TEVA-374632GER

PATIENT
  Sex: Female

DRUGS (2)
  1. CITALOPRAM [Suspect]
     Indication: POSTPARTUM DEPRESSION
     Dosage: 40 MILLIGRAM DAILY;
     Route: 048
     Dates: start: 2011
  2. TEBONIN [Concomitant]

REACTIONS (5)
  - Arrhythmia [Recovered/Resolved]
  - Vaginal haemorrhage [Recovered/Resolved]
  - Nipple exudate bloody [Recovered/Resolved]
  - Haemoglobin decreased [Recovered/Resolved]
  - Transferrin decreased [Recovered/Resolved]
